FAERS Safety Report 9189477 (Version 2)
Quarter: 2013Q2

REPORT INFORMATION
  Report Type: Report from Study
  Country: MX (occurrence: MX)
  Receive Date: 20130326
  Receipt Date: 20130508
  Transmission Date: 20140414
  Serious: Yes (Death)
  Sender: FDA-Public Use
  Company Number: PHHY2013MX029049

PATIENT
  Age: 83 Year
  Sex: Male

DRUGS (4)
  1. GALVUS MET [Suspect]
     Indication: DIABETES MELLITUS
     Dosage: 1 DF, DAILY (850 MG METF AND 50 MG VILD)
     Route: 048
     Dates: start: 201101
  2. STALEVO [Suspect]
     Dosage: 1 DF, DAILY
     Dates: start: 200601
  3. KINEX//BIPERIDEN HYDROCHLORIDE [Concomitant]
     Dosage: 2 UKN, DAILY
     Dates: start: 200601
  4. MADOPAR [Concomitant]
     Dosage: 1 UKN, DAILY
     Dates: start: 200601

REACTIONS (3)
  - Pneumonia [Fatal]
  - Cough [Fatal]
  - Productive cough [Fatal]
